FAERS Safety Report 5822474-1 (Version None)
Quarter: 2008Q3

REPORT INFORMATION
  Report Type: 
  Country: None (occurrence: None)
  Receive Date: 20080725
  Receipt Date: 20080204
  Transmission Date: 20090109
  Serious: No
  Sender: FDA-Public Use
  Company Number: US-AMGEN-KDL264208

PATIENT
  Sex: Female
  Weight: 67.2 kg

DRUGS (7)
  1. PROCRIT [Suspect]
     Indication: RENAL FAILURE CHRONIC
     Dates: start: 20060801
  2. TRICOR [Concomitant]
     Dates: start: 20040101
  3. ASPIRIN [Concomitant]
  4. DIOVAN HCT [Concomitant]
  5. METOPROLOL TARTRATE [Concomitant]
  6. NOVALOG INSULIN [Concomitant]
  7. LANTUS [Concomitant]

REACTIONS (3)
  - ARTHRALGIA [None]
  - BONE PAIN [None]
  - WEIGHT INCREASED [None]
